FAERS Safety Report 22738338 (Version 7)
Quarter: 2023Q4

REPORT INFORMATION
  Report Type: Spontaneous
  Country: US (occurrence: US)
  Receive Date: 20230721
  Receipt Date: 20231228
  Transmission Date: 20240110
  Serious: Yes (Hospitalization, Other)
  Sender: FDA-Public Use
  Company Number: US-BRISTOL-MYERS SQUIBB COMPANY-2023-103038

PATIENT
  Age: 75 Year
  Sex: Female

DRUGS (3)
  1. POMALYST [Suspect]
     Active Substance: POMALIDOMIDE
     Indication: Breast cancer female
     Dosage: 1 CAPSULE WHOLE BY MOUTH 2HR AWAY FROM FOOD AT AROUND SAME TIME DAILY FOR 21 DAYS ON AND 7 DAYS OFF
     Route: 048
     Dates: start: 20200831
  2. POMALYST [Suspect]
     Active Substance: POMALIDOMIDE
     Indication: Plasma cell myeloma
     Dosage: 1 CAPSULE WHOLE BY MOUTH 2HR AWAY FROM FOOD AT AROUND SAME TIME DAILY FOR 21 DAYS ON AND 7 DAYS OFF
     Route: 048
     Dates: start: 20230807, end: 20230817
  3. POMALYST [Suspect]
     Active Substance: POMALIDOMIDE
     Dosage: FREQUENCY-3

REACTIONS (10)
  - Gallbladder disorder [Recovering/Resolving]
  - Product dose omission issue [Unknown]
  - Lip disorder [Recovering/Resolving]
  - Urinary tract infection [Recovering/Resolving]
  - Fungal skin infection [Recovering/Resolving]
  - Impaired healing [Recovering/Resolving]
  - Illness [Not Recovered/Not Resolved]
  - Influenza [Recovered/Resolved]
  - Cough [Not Recovered/Not Resolved]
  - Lymphadenopathy [Not Recovered/Not Resolved]
